FAERS Safety Report 7633429-9 (Version None)
Quarter: 2011Q3

REPORT INFORMATION
  Report Type: 
  Country: None (occurrence: None)
  Receive Date: 20110725
  Receipt Date: 20110712
  Transmission Date: 20111222
  Serious: Yes (Hospitalization, Congenital Anomaly, Other)
  Sender: FDA-Public Use
  Company Number: US-PFIZER INC-2011159758

PATIENT
  Sex: Male
  Weight: 3.22 kg

DRUGS (4)
  1. ZOLOFT [Suspect]
     Indication: DEPRESSION
     Dosage: 100MG, UNK
     Route: 064
     Dates: start: 20070101
  2. BUSPAR [Concomitant]
     Dosage: ONE AND HALF TABLETS TWICE DAILY AND INCREASED TO 2 TABLETS TWICE DAILY.
  3. KLONOPIN [Concomitant]
     Dosage: AT NIGHT
  4. ZOLOFT [Suspect]
     Indication: ANXIETY

REACTIONS (3)
  - CRANIOSYNOSTOSIS [None]
  - FAILURE TO THRIVE [None]
  - MATERNAL EXPOSURE DURING PREGNANCY [None]
